FAERS Safety Report 24446539 (Version 2)
Quarter: 2025Q4

REPORT INFORMATION
  Report Type: Spontaneous
  Country: US (occurrence: US)
  Receive Date: 20241016
  Receipt Date: 20251105
  Transmission Date: 20260117
  Serious: No
  Sender: RANBAXY
  Company Number: US-SUN PHARMACEUTICAL INDUSTRIES LTD-2023R1-425127

PATIENT
  Sex: Female

DRUGS (5)
  1. XELPROS [Suspect]
     Active Substance: LATANOPROST
     Indication: Glaucoma
     Dosage: UNK
     Route: 065
     Dates: end: 2022
  2. METOPROLOL [Concomitant]
     Active Substance: METOPROLOL
     Indication: Glaucoma
     Dosage: UNK
     Route: 065
  3. ATORVASTATIN [Concomitant]
     Active Substance: ATORVASTATIN
     Indication: Palpitations
     Dosage: UNK
     Route: 065
  4. ZIOPTAN [Concomitant]
     Active Substance: TAFLUPROST
     Indication: Glaucoma
     Dosage: UNK
     Route: 065
  5. IYUZEH [Concomitant]
     Active Substance: LATANOPROST
     Indication: Glaucoma
     Dosage: UNK
     Route: 065

REACTIONS (1)
  - Product use issue [Unknown]
